FAERS Safety Report 8996025 (Version 1)
Quarter: 2013Q1

REPORT INFORMATION
  Report Type: Spontaneous
  Country: US (occurrence: US)
  Receive Date: 20130103
  Receipt Date: 20130103
  Transmission Date: 20140127
  Serious: No
  Sender: FDA-Public Use
  Company Number: US-ABBOTT-12P-163-0933647-00

PATIENT
  Sex: Female
  Weight: 40.86 kg

DRUGS (1)
  1. SYNTHROID 88 MCG [Suspect]
     Indication: HYPOTHYROIDISM
     Dates: start: 2008

REACTIONS (3)
  - Viral infection [Recovering/Resolving]
  - Rash generalised [Not Recovered/Not Resolved]
  - Pyrexia [Recovering/Resolving]
